FAERS Safety Report 19791386 (Version 6)
Quarter: 2022Q2

REPORT INFORMATION
  Report Type: Other
  Country: DE (occurrence: None)
  Receive Date: 20210906
  Receipt Date: 20220614
  Transmission Date: 20220720
  Serious: Yes (Hospitalization, Other)
  Sender: FDA-Public Use
  Company Number: DE-ROCHE-2765831

PATIENT
  Age: 35 Year
  Sex: Female
  Weight: 50 kg

DRUGS (3)
  1. OCREVUS [Suspect]
     Active Substance: OCRELIZUMAB
     Indication: Relapsing-remitting multiple sclerosis
     Route: 042
     Dates: start: 20210127
  2. OCREVUS [Suspect]
     Active Substance: OCRELIZUMAB
     Route: 042
     Dates: start: 20210819
  3. COVID-19 VACCINE NOS [Suspect]
     Active Substance: COVID-19 VACCINE NOS
     Indication: COVID-19 immunisation
     Dosage: FIRST VACCINATION
     Route: 065
     Dates: start: 20210422

REACTIONS (15)
  - Appendicitis perforated [Recovered/Resolved]
  - Fatigue [Recovered/Resolved]
  - Pain in extremity [Recovered/Resolved]
  - Chills [Recovered/Resolved]
  - Alopecia [Recovering/Resolving]
  - Vertigo [Recovered/Resolved]
  - Hypoaesthesia oral [Recovered/Resolved]
  - Chromaturia [Recovered/Resolved]
  - Laryngitis [Recovered/Resolved]
  - Dysphonia [Recovered/Resolved]
  - Weight decreased [Recovered/Resolved]
  - Tibia fracture [Recovered/Resolved]
  - Osteoporosis [Unknown]
  - COVID-19 [Recovered/Resolved]
  - Palpitations [Recovered/Resolved]

NARRATIVE: CASE EVENT DATE: 20210127
